FAERS Safety Report 4447241-5 (Version None)
Quarter: 2004Q3

REPORT INFORMATION
  Report Type: 
  Country: None (occurrence: None)
  Receive Date: 20040908
  Receipt Date: 20040908
  Transmission Date: 20050211
  Serious: Yes (Hospitalization)
  Sender: FDA-Public Use
  Company Number: None

PATIENT
  Age: 61 Year
  Sex: Male

DRUGS (6)
  1. DILANTIN [Suspect]
     Indication: CONVULSION
     Dosage: 300 MG QHS
     Dates: start: 19970401
  2. NITROGLYCERIN [Concomitant]
  3. ASPIRIN [Concomitant]
  4. FOSINOPRIL SODIUM [Concomitant]
  5. PHENOBARBITAL TAB [Concomitant]
  6. OMEPRAZOLE [Concomitant]

REACTIONS (2)
  - ASTHENIA [None]
  - ATAXIA [None]
